FAERS Safety Report 25386578 (Version 2)
Quarter: 2025Q3

REPORT INFORMATION
  Report Type: Spontaneous
  Country: EU (occurrence: EU)
  Receive Date: 20250602
  Receipt Date: 20250714
  Transmission Date: 20251020
  Serious: Yes (Other)
  Sender: MYLAN
  Company Number: EU-MYLANLABS-2025M1045853

PATIENT
  Sex: Male
  Weight: 25 kg

DRUGS (16)
  1. ROCURONIUM BROMIDE [Suspect]
     Active Substance: ROCURONIUM BROMIDE
     Indication: Neuromuscular blocking therapy
  2. ROCURONIUM BROMIDE [Suspect]
     Active Substance: ROCURONIUM BROMIDE
  3. ROCURONIUM BROMIDE [Suspect]
     Active Substance: ROCURONIUM BROMIDE
     Route: 065
  4. ROCURONIUM BROMIDE [Suspect]
     Active Substance: ROCURONIUM BROMIDE
     Route: 065
  5. ROCURONIUM BROMIDE [Suspect]
     Active Substance: ROCURONIUM BROMIDE
  6. ROCURONIUM BROMIDE [Suspect]
     Active Substance: ROCURONIUM BROMIDE
  7. ROCURONIUM BROMIDE [Suspect]
     Active Substance: ROCURONIUM BROMIDE
     Route: 065
  8. ROCURONIUM BROMIDE [Suspect]
     Active Substance: ROCURONIUM BROMIDE
     Route: 065
  9. SEVOFLURANE [Concomitant]
     Active Substance: SEVOFLURANE
     Indication: Anaesthesia
  10. SEVOFLURANE [Concomitant]
     Active Substance: SEVOFLURANE
     Route: 065
  11. SEVOFLURANE [Concomitant]
     Active Substance: SEVOFLURANE
     Route: 065
  12. SEVOFLURANE [Concomitant]
     Active Substance: SEVOFLURANE
  13. SUFENTA [Concomitant]
     Active Substance: SUFENTANIL CITRATE
     Indication: Anaesthesia
  14. SUFENTA [Concomitant]
     Active Substance: SUFENTANIL CITRATE
     Route: 065
  15. SUFENTA [Concomitant]
     Active Substance: SUFENTANIL CITRATE
     Route: 065
  16. SUFENTA [Concomitant]
     Active Substance: SUFENTANIL CITRATE

REACTIONS (1)
  - Drug ineffective [Unknown]
